FAERS Safety Report 20466575 (Version 2)
Quarter: 2022Q1

REPORT INFORMATION
  Report Type: Report from Study
  Country: CA (occurrence: CA)
  Receive Date: 20220213
  Receipt Date: 20220321
  Transmission Date: 20220424
  Serious: Yes (Other)
  Sender: FDA-Public Use
  Company Number: CA-ABBVIE-22K-028-4274659-00

PATIENT
  Age: 66 Year
  Sex: Male

DRUGS (1)
  1. SKYRIZI [Suspect]
     Active Substance: RISANKIZUMAB-RZAA
     Indication: Psoriasis
     Route: 058
     Dates: start: 20210407

REACTIONS (3)
  - Shoulder operation [Unknown]
  - Postoperative wound infection [Unknown]
  - Unevaluable event [Unknown]

NARRATIVE: CASE EVENT DATE: 20220120
